FAERS Safety Report 5078684-7 (Version None)
Quarter: 2006Q3

REPORT INFORMATION
  Report Type: 
  Country: None (occurrence: None)
  Receive Date: 20060720
  Receipt Date: 20060606
  Transmission Date: 20061208
  Serious: Yes (Other)
  Sender: FDA-Public Use
  Company Number: HQWYE052209JUN06

PATIENT
  Age: 53 Year
  Sex: Female
  Weight: 77.18 kg

DRUGS (5)
  1. ADVIL PM [Suspect]
     Indication: INSOMNIA
     Dosage: 2 CAPLETS DAILY, ORAL
     Route: 048
     Dates: start: 20060603, end: 20060605
  2. UNSPECIFIED HORMONE REPLACEMENT THERAPY AGENT (UNSPECIFIED HORMONE REP [Concomitant]
  3. PROZAC [Concomitant]
  4. MEDROXYPROGESTERONE [Concomitant]
  5. UNSPECIFIED GASTROINTESTINAL AGENT ( UNSPECIFIED GASTROINTESTINAL AGEN [Concomitant]

REACTIONS (1)
  - DRUG INEFFECTIVE [None]
